FAERS Safety Report 12680169 (Version 1)
Quarter: 2016Q3

REPORT INFORMATION
  Report Type: Other
  Country: DK (occurrence: DK)
  Receive Date: 20160824
  Receipt Date: 20160824
  Transmission Date: 20161109
  Serious: Yes (Other)
  Sender: FDA-Public Use
  Company Number: DK-B. BRAUN MEDICAL INC.-1056698

PATIENT
  Age: 35 Year
  Sex: Female

DRUGS (1)
  1. CEFUROXIME FOR INJECTION USP AND DEXTROSE INJECTION USP [Suspect]
     Active Substance: CEFUROXIME SODIUM
     Indication: ANTIBIOTIC PROPHYLAXIS

REACTIONS (1)
  - Vaginal haemorrhage [None]
